FAERS Safety Report 7798161-X (Version None)
Quarter: 2011Q4

REPORT INFORMATION
  Report Type: 
  Country: None (occurrence: None)
  Receive Date: 20111005
  Receipt Date: 20110923
  Transmission Date: 20120403
  Serious: Yes (Hospitalization)
  Sender: FDA-Public Use
  Company Number: US-ACTELION-A-NJ2011-54577

PATIENT

DRUGS (1)
  1. TRACLEER [Suspect]
     Indication: PULMONARY ARTERIAL HYPERTENSION
     Dosage: UNK
     Route: 048
     Dates: start: 20060101

REACTIONS (6)
  - NEPHROLITHIASIS [None]
  - CYSTITIS [None]
  - BLADDER NECK SUSPENSION [None]
  - ARTHRALGIA [None]
  - RHEUMATOID ARTHRITIS [None]
  - ANAEMIA [None]
